FAERS Safety Report 14301715 (Version 2)
Quarter: 2018Q3

REPORT INFORMATION
  Report Type: Report from Study
  Country: GB (occurrence: GB)
  Receive Date: 20171219
  Receipt Date: 20180921
  Transmission Date: 20181010
  Serious: Yes (Hospitalization, Other)
  Sender: FDA-Public Use
  Company Number: GB-TEVA-2017-GB-830684

PATIENT
  Age: 53 Year
  Sex: Female

DRUGS (2)
  1. METHOTREXATE. [Suspect]
     Active Substance: METHOTREXATE
     Indication: PRODUCT USED FOR UNKNOWN INDICATION
     Route: 065
  2. ABATACEPT [Suspect]
     Active Substance: ABATACEPT
     Indication: RHEUMATOID ARTHRITIS
     Dosage: 125 MG, QWK
     Route: 058
     Dates: start: 20161017

REACTIONS (8)
  - Pain [Recovering/Resolving]
  - Chills [Recovering/Resolving]
  - Nasopharyngitis [Recovering/Resolving]
  - Lower respiratory tract infection [Unknown]
  - Urinary tract infection [Recovering/Resolving]
  - Tremor [Recovering/Resolving]
  - Malaise [Unknown]
  - Liver function test abnormal [Recovered/Resolved]
